FAERS Safety Report 26083212 (Version 1)
Quarter: 2025Q4

REPORT INFORMATION
  Report Type: Spontaneous
  Country: US (occurrence: US)
  Receive Date: 20251124
  Receipt Date: 20251124
  Transmission Date: 20260118
  Serious: No
  Sender: BAYER HEALTHCARE LLC
  Company Number: US-BAYER-2025A155242

PATIENT
  Age: 69 Year
  Sex: Female

DRUGS (2)
  1. ASTEPRO [Suspect]
     Active Substance: AZELASTINE HYDROCHLORIDE
     Indication: Prophylaxis
     Dosage: UNK
     Route: 045
     Dates: start: 2024, end: 20251120
  2. ASTEPRO ALLERGY [Suspect]
     Active Substance: AZELASTINE HYDROCHLORIDE
     Indication: Prophylaxis
     Dosage: UNK
     Route: 045
     Dates: start: 2024, end: 20251120

REACTIONS (1)
  - Nasal discomfort [Recovering/Resolving]

NARRATIVE: CASE EVENT DATE: 20251120
